FAERS Safety Report 17548920 (Version 1)
Quarter: 2020Q1

REPORT INFORMATION
  Report Type: Spontaneous
  Country: CN (occurrence: CN)
  Receive Date: 20200317
  Receipt Date: 20200317
  Transmission Date: 20200409
  Serious: Yes (Other)
  Sender: FDA-Public Use
  Company Number: CN-ROCHE-2567419

PATIENT
  Age: 58 Year
  Sex: Male

DRUGS (39)
  1. OXALIPLATIN. [Concomitant]
     Active Substance: OXALIPLATIN
     Dosage: ON DAY 1
     Route: 065
     Dates: start: 20190825
  2. FLUOROURACIL. [Concomitant]
     Active Substance: FLUOROURACIL
     Dosage: 756MG D1 IV+4.5G CIV 46H
     Route: 065
     Dates: start: 20190605
  3. CALCIUM FOLINATE [Concomitant]
     Active Substance: LEUCOVORIN CALCIUM
     Indication: ADENOCARCINOMA
     Dosage: ON DAY 1
     Route: 065
     Dates: start: 20190430
  4. RALTITREXED [Concomitant]
     Active Substance: RALTITREXED
     Dosage: OR EMBOLIZATION
     Route: 065
     Dates: start: 20190918
  5. AVASTIN [Suspect]
     Active Substance: BEVACIZUMAB
     Dosage: ON DAY 1
     Route: 065
     Dates: start: 20190825
  6. OXALIPLATIN. [Concomitant]
     Active Substance: OXALIPLATIN
     Dosage: ON DAY 1, 21 DAYS ONE CYCLE
     Route: 065
     Dates: start: 20190125
  7. OXALIPLATIN. [Concomitant]
     Active Substance: OXALIPLATIN
     Dosage: ON DAY 1
     Route: 041
     Dates: start: 20190619
  8. OXALIPLATIN. [Concomitant]
     Active Substance: OXALIPLATIN
     Dosage: FOR EMBOLIZATION
     Route: 065
     Dates: start: 20190918
  9. IRINOTECAN HYDROCHLORIDE. [Concomitant]
     Active Substance: IRINOTECAN HYDROCHLORIDE
     Indication: ADENOCARCINOMA
     Dosage: ON DAY 1
     Route: 065
     Dates: start: 20190430
  10. EPIRUBICIN [Concomitant]
     Active Substance: EPIRUBICIN
     Route: 065
     Dates: start: 20190918
  11. APATINIB [Concomitant]
     Active Substance: APATINIB
     Indication: ADENOCARCINOMA
     Route: 065
     Dates: start: 20200101
  12. XELODA [Suspect]
     Active Substance: CAPECITABINE
     Dosage: ON DAY 1-14, 21 DAYS ONE CYCLE
     Route: 048
     Dates: start: 20181005
  13. XELODA [Suspect]
     Active Substance: CAPECITABINE
     Dosage: ON DAY 1-14, 21 DAYS ONE CYCLE
     Route: 048
     Dates: start: 20181124
  14. AVASTIN [Suspect]
     Active Substance: BEVACIZUMAB
     Dosage: ON DAY 1
     Route: 065
     Dates: start: 20190802
  15. OXALIPLATIN. [Concomitant]
     Active Substance: OXALIPLATIN
     Dosage: ON DAY 1
     Route: 065
     Dates: start: 20190802
  16. XELODA [Suspect]
     Active Substance: CAPECITABINE
     Indication: ADENOCARCINOMA
     Dosage: ON DAY 1-14, 21 DAYS ONE CYCLE
     Route: 048
     Dates: start: 20180914
  17. AVASTIN [Suspect]
     Active Substance: BEVACIZUMAB
     Indication: ADENOCARCINOMA
     Dosage: 400MG, 300MG ALTERNATE USE
     Route: 065
     Dates: start: 20190619
  18. OXALIPLATIN. [Concomitant]
     Active Substance: OXALIPLATIN
     Dosage: ON DAY 1, 21 DAYS ONE CYCLE
     Route: 065
     Dates: start: 20181005
  19. OXALIPLATIN. [Concomitant]
     Active Substance: OXALIPLATIN
     Dosage: ON DAY 1, 21 DAYS ONE CYCLE
     Route: 065
     Dates: start: 20181124
  20. OXALIPLATIN. [Concomitant]
     Active Substance: OXALIPLATIN
     Dosage: ON DAY 1, 21 DAYS ONE CYCLE
     Route: 065
     Dates: start: 20181231
  21. FLUOROURACIL. [Concomitant]
     Active Substance: FLUOROURACIL
     Dosage: 756MG D1 IV+4.5G CIV 46H
     Route: 065
     Dates: start: 20190619
  22. REGORAFENIB. [Concomitant]
     Active Substance: REGORAFENIB
     Indication: ADENOCARCINOMA
  23. XELODA [Suspect]
     Active Substance: CAPECITABINE
     Dosage: ON DAY 1-14, 21 DAYS ONE CYCLE
     Route: 048
     Dates: start: 20190125
  24. XELODA [Suspect]
     Active Substance: CAPECITABINE
     Route: 048
     Dates: start: 20200101
  25. AVASTIN [Suspect]
     Active Substance: BEVACIZUMAB
     Dosage: ON DAY 1
     Route: 065
     Dates: start: 20190711
  26. OXALIPLATIN. [Concomitant]
     Active Substance: OXALIPLATIN
     Indication: ADENOCARCINOMA
     Dosage: ON DAY 1, 21 DAYS ONE CYCLE
     Route: 065
     Dates: start: 20180914
  27. OXALIPLATIN. [Concomitant]
     Active Substance: OXALIPLATIN
     Dosage: ON DAY 1
     Route: 041
     Dates: start: 20190605
  28. IRINOTECAN HYDROCHLORIDE. [Concomitant]
     Active Substance: IRINOTECAN HYDROCHLORIDE
     Dosage: ON DAY 1
     Route: 041
     Dates: start: 20190605
  29. XELODA [Suspect]
     Active Substance: CAPECITABINE
     Dosage: ON DAY 1-14, 21 DAYS ONE CYCLE
     Route: 048
     Dates: start: 20181231
  30. IRINOTECAN HYDROCHLORIDE. [Concomitant]
     Active Substance: IRINOTECAN HYDROCHLORIDE
     Dosage: ON DAY 1
     Route: 041
     Dates: start: 20190520
  31. IRINOTECAN HYDROCHLORIDE. [Concomitant]
     Active Substance: IRINOTECAN HYDROCHLORIDE
     Dosage: ON DAY 1
     Route: 041
     Dates: start: 20190619
  32. FLUOROURACIL. [Concomitant]
     Active Substance: FLUOROURACIL
     Indication: ADENOCARCINOMA
     Dosage: 0.74G ON D1 + PUMP MAINTENANCE OF 4.45G FOR 46-48H
     Route: 065
     Dates: start: 20190430
  33. RALTITREXED [Concomitant]
     Active Substance: RALTITREXED
     Dosage: ON DAY 1
     Route: 065
     Dates: start: 20190802
  34. IODIZED OIL [Concomitant]
     Active Substance: IODIZED OIL
     Route: 065
     Dates: start: 20190918
  35. OXALIPLATIN. [Concomitant]
     Active Substance: OXALIPLATIN
     Dosage: ON DAY 1
     Route: 041
     Dates: start: 20190520
  36. OXALIPLATIN. [Concomitant]
     Active Substance: OXALIPLATIN
     Dosage: ON DAY 1
     Route: 065
     Dates: start: 20190711
  37. FLUOROURACIL. [Concomitant]
     Active Substance: FLUOROURACIL
     Dosage: 756MG D1 IV+4.5G CIV 46H
     Route: 065
     Dates: start: 20190520
  38. RALTITREXED [Concomitant]
     Active Substance: RALTITREXED
     Indication: ADENOCARCINOMA
     Dosage: ON DAY 1
     Route: 065
     Dates: start: 20190711
  39. RALTITREXED [Concomitant]
     Active Substance: RALTITREXED
     Dosage: ON DAY 1
     Route: 065
     Dates: start: 20190825

REACTIONS (3)
  - Agranulocytosis [Recovering/Resolving]
  - Granulocyte count decreased [Recovering/Resolving]
  - Platelet count decreased [Recovering/Resolving]
